FAERS Safety Report 6105371-6 (Version None)
Quarter: 2009Q1

REPORT INFORMATION
  Report Type: 
  Country: None (occurrence: None)
  Receive Date: 20090306
  Receipt Date: 20090224
  Transmission Date: 20090719
  Serious: Yes (Other)
  Sender: FDA-Public Use
  Company Number: JP-PFIZER INC-2009175313

PATIENT

DRUGS (1)
  1. SELARA [Suspect]
     Dosage: UNK
     Route: 048
     Dates: start: 20090203, end: 20090217

REACTIONS (1)
  - CONVULSION [None]
